FAERS Safety Report 7372534-1 (Version None)
Quarter: 2011Q1

REPORT INFORMATION
  Report Type: 
  Country: None (occurrence: None)
  Receive Date: 20110316
  Receipt Date: 20110307
  Transmission Date: 20110831
  Serious: Yes (Hospitalization)
  Sender: FDA-Public Use
  Company Number: 028864

PATIENT
  Age: 63 Year
  Sex: Male

DRUGS (7)
  1. NEXIUM [Suspect]
     Dosage: (20 MG ORAL) ; (ORAL)
     Route: 048
     Dates: start: 20101224, end: 20110107
  2. NEXIUM [Suspect]
     Dosage: (20 MG ORAL) ; (ORAL)
     Route: 048
     Dates: start: 20110110
  3. IMODIUM /00384302/ [Concomitant]
  4. AVLOCARDYL /00030001/ [Concomitant]
  5. TARDYFERON /00023503/ [Concomitant]
  6. KEPPRA [Suspect]
     Dosage: (ORAL)
     Route: 048
     Dates: start: 20101224, end: 20110104
  7. LYRICA [Concomitant]

REACTIONS (1)
  - AGRANULOCYTOSIS [None]
